FAERS Safety Report 5873603-5 (Version None)
Quarter: 2008Q3

REPORT INFORMATION
  Report Type: 
  Country: None (occurrence: None)
  Receive Date: 20080908
  Receipt Date: 20080902
  Transmission Date: 20090109
  Serious: Yes (Hospitalization)
  Sender: FDA-Public Use
  Company Number: FI-AVENTIS-200818288GDDC

PATIENT
  Age: 72 Year
  Sex: Male

DRUGS (10)
  1. TAXOTERE [Suspect]
     Indication: PROSTATE CANCER
     Route: 042
     Dates: start: 20080813, end: 20080813
  2. NEORECORMON [Suspect]
     Indication: PROSTATE CANCER
     Dosage: DOSE: UNK
  3. PREDNISONE [Concomitant]
  4. ZOMETA [Concomitant]
  5. COVERSYL                           /00790701/ [Concomitant]
  6. PRAVACHOL [Concomitant]
  7. BISOPROLOL FUMARATE [Concomitant]
  8. PRIMASPAN [Concomitant]
  9. SYMBICORT [Concomitant]
     Dosage: DOSE: UNK
  10. PROCREN [Concomitant]
     Dosage: DOSE: UNK

REACTIONS (2)
  - PYREXIA [None]
  - TRANSIENT ISCHAEMIC ATTACK [None]
